FAERS Safety Report 10424984 (Version 1)
Quarter: 2014Q3

REPORT INFORMATION
  Report Type: Spontaneous
  Country: US (occurrence: None)
  Receive Date: 20140722
  Receipt Date: 20140722
  Transmission Date: 20150326
  Serious: No
  Sender: FDA-Public Use
  Company Number: AEGR000495

PATIENT
  Age: 56 Year
  Sex: Female

DRUGS (14)
  1. DICLOFENAC [Concomitant]
     Active Substance: DICLOFENAC
  2. DIVALPROEX SODIUM (VALPROATE SEMISODIUM) [Concomitant]
  3. METOPROLOL [Concomitant]
     Active Substance: METOPROLOL
  4. ASPIRIN. [Concomitant]
     Active Substance: ASPIRIN
  5. JUXTAPID [Suspect]
     Active Substance: LOMITAPIDE MESYLATE
     Indication: TYPE IIA HYPERLIPIDAEMIA
     Route: 048
     Dates: start: 20140512, end: 20140521
  6. NIACIN (NICOTINIC ACID) [Concomitant]
  7. ATORVASTATIN [Concomitant]
     Active Substance: ATORVASTATIN
  8. FENOFIBRATE. [Concomitant]
     Active Substance: FENOFIBRATE
  9. NITROSTAT (GLYCERYL TRINITRATE) [Concomitant]
  10. ZETIA [Concomitant]
     Active Substance: EZETIMIBE
  11. DEXILANT [Concomitant]
     Active Substance: DEXLANSOPRAZOLE
  12. PLAVIX [Concomitant]
     Active Substance: CLOPIDOGREL BISULFATE
  13. ISOSORBIDE [Concomitant]
     Active Substance: ISOSORBIDE
  14. NIFEDIPINE. [Concomitant]
     Active Substance: NIFEDIPINE

REACTIONS (2)
  - Nausea [None]
  - Diarrhoea [None]

NARRATIVE: CASE EVENT DATE: 20140521
